FAERS Safety Report 4488712-5 (Version None)
Quarter: 2004Q4

REPORT INFORMATION
  Report Type: 
  Country: None (occurrence: None)
  Receive Date: 20041025
  Receipt Date: 20041007
  Transmission Date: 20050328
  Serious: Yes (Other)
  Sender: FDA-Public Use
  Company Number: 2004080130

PATIENT
  Age: 45 Year
  Sex: Male

DRUGS (3)
  1. ZITHROMAX [Suspect]
     Indication: ILL-DEFINED DISORDER
     Dates: end: 20041002
  2. CEFOZOPRAN HYDROCHLORIDE [Concomitant]
  3. ETIZOLAM [Concomitant]

REACTIONS (6)
  - ABDOMINAL DISTENSION [None]
  - ABDOMINAL PAIN [None]
  - BLOOD PRESSURE DECREASED [None]
  - DIARRHOEA [None]
  - DISEASE RECURRENCE [None]
  - VOMITING [None]
